FAERS Safety Report 7762763-7 (Version None)
Quarter: 2011Q3

REPORT INFORMATION
  Report Type: 
  Country: None (occurrence: None)
  Receive Date: 20110920
  Receipt Date: 20110915
  Transmission Date: 20111222
  Serious: Yes (Hospitalization)
  Sender: FDA-Public Use
  Company Number: US-ABBOTT-11P-163-0855425-00

PATIENT
  Sex: Female
  Weight: 56.75 kg

DRUGS (8)
  1. MULTI-VITAMINS [Concomitant]
     Indication: VITAMIN SUPPLEMENTATION
  2. CYMBALTA [Concomitant]
     Indication: DEPRESSION
  3. HUMIRA [Suspect]
     Dates: end: 20101101
  4. CYMBALTA [Concomitant]
     Indication: PAIN
  5. AMBIEN [Concomitant]
     Indication: INSOMNIA
  6. ZINC [Concomitant]
     Indication: MINERAL SUPPLEMENTATION
  7. HUMIRA [Suspect]
     Indication: CROHN'S DISEASE
     Dates: end: 20080901
  8. VITAMIN D [Concomitant]
     Indication: VITAMIN SUPPLEMENTATION

REACTIONS (21)
  - PELVIC PAIN [None]
  - SMALL INTESTINAL STENOSIS [None]
  - WEIGHT DECREASED [None]
  - CELLULITIS [None]
  - OVARIAN MASS [None]
  - SMALL INTESTINAL OBSTRUCTION [None]
  - IMPAIRED HEALING [None]
  - THROMBOSIS [None]
  - PROCEDURAL COMPLICATION [None]
  - OVARIAN CYST [None]
  - ENDOMETRIOSIS [None]
  - EYELID RETRACTION [None]
  - ROCKY MOUNTAIN SPOTTED FEVER [None]
  - BASEDOW'S DISEASE [None]
  - TEMPERATURE INTOLERANCE [None]
  - WOUND COMPLICATION [None]
  - INFECTIOUS PERITONITIS [None]
  - ANXIETY [None]
  - HORMONE LEVEL ABNORMAL [None]
  - EXOPHTHALMOS [None]
  - ARTHROPOD BITE [None]
